FAERS Safety Report 9169098 (Version 2)
Quarter: 2013Q2

REPORT INFORMATION
  Report Type: Spontaneous
  Country: US (occurrence: US)
  Receive Date: 20130318
  Receipt Date: 20130508
  Transmission Date: 20140414
  Serious: Yes (Death)
  Sender: FDA-Public Use
  Company Number: US-GLAXOSMITHKLINE-A1016023A

PATIENT
  Age: 56 Year
  Sex: Female

DRUGS (1)
  1. AVANDIA [Suspect]
     Indication: DIABETES MELLITUS
     Route: 048

REACTIONS (3)
  - Myocardial infarction [Fatal]
  - Type 2 diabetes mellitus [Fatal]
  - Cardiac failure congestive [Unknown]
